FAERS Safety Report 9051337 (Version 2)
Quarter: 2013Q2

REPORT INFORMATION
  Report Type: Spontaneous
  Country: US (occurrence: US)
  Receive Date: 20130206
  Receipt Date: 20130503
  Transmission Date: 20140414
  Serious: No
  Sender: FDA-Public Use
  Company Number: US-009507513-1302USA001452

PATIENT
  Sex: Female

DRUGS (4)
  1. PEG-INTRON [Suspect]
     Indication: HEPATITIS C
     Dosage: 150 MICROGRAM/0.5 ML, QW
     Route: 058
  2. SELENIUM [Concomitant]
     Dosage: 25 MCG
  3. ZOLOFT [Concomitant]
  4. REBETOL [Suspect]
     Indication: HEPATITIS C

REACTIONS (4)
  - Hyperhidrosis [Unknown]
  - Abdominal pain upper [Unknown]
  - Headache [Unknown]
  - Hyperhidrosis [Unknown]
